FAERS Safety Report 5339408-9 (Version None)
Quarter: 2007Q2

REPORT INFORMATION
  Report Type: 
  Country: None (occurrence: None)
  Receive Date: 20070322
  Receipt Date: 20060927
  Transmission Date: 20071010
  Serious: Yes (Other)
  Sender: FDA-Public Use
  Company Number: 200613406BCC

PATIENT
  Age: 30 Year
  Sex: Male
  Weight: 120.2032 kg

DRUGS (1)
  1. ALEVE (CAPLET) [Suspect]
     Indication: TOOTHACHE
     Dosage: 880 MG, TOTAL DAILY, ORAL
     Route: 048
     Dates: start: 20060802, end: 20060808

REACTIONS (1)
  - BLOOD PRESSURE INCREASED [None]
